FAERS Safety Report 6032581-9 (Version None)
Quarter: 2009Q1

REPORT INFORMATION
  Report Type: 
  Country: None (occurrence: None)
  Receive Date: 20090107
  Receipt Date: 20090107
  Transmission Date: 20090719
  Serious: No
  Sender: FDA-Public Use
  Company Number: None

PATIENT
  Age: 75 Year
  Sex: Female
  Weight: 65.318 kg

DRUGS (1)
  1. TOPROL-XL [Suspect]
     Indication: SUPRAVENTRICULAR TACHYCARDIA
     Dosage: 50 MG DAILY PO
     Dates: start: 20041110, end: 20041111

REACTIONS (2)
  - AMNESIA [None]
  - DIZZINESS [None]
